FAERS Safety Report 18538496 (Version 1)
Quarter: 2020Q4

REPORT INFORMATION
  Report Type: Spontaneous
  Country: JP (occurrence: JP)
  Receive Date: 20201124
  Receipt Date: 20201124
  Transmission Date: 20210114
  Serious: Yes (Other)
  Sender: FDA-Public Use
  Company Number: NVSJ2020JP012436

PATIENT
  Age: 44 Year
  Sex: Male

DRUGS (4)
  1. VALSARTAN. [Suspect]
     Active Substance: VALSARTAN
     Indication: CONGESTIVE CARDIOMYOPATHY
     Dosage: 80 MG
     Route: 065
     Dates: start: 2005
  2. CARVEDILOL. [Concomitant]
     Active Substance: CARVEDILOL
     Dosage: 40 MG
     Route: 065
  3. CARVEDILOL. [Concomitant]
     Active Substance: CARVEDILOL
     Indication: CONGESTIVE CARDIOMYOPATHY
     Dosage: 20 MG
     Route: 065
  4. EPLERENONE. [Concomitant]
     Active Substance: EPLERENONE
     Indication: CONGESTIVE CARDIOMYOPATHY
     Dosage: UNK
     Route: 065
     Dates: start: 2009

REACTIONS (3)
  - Ventricular tachycardia [Unknown]
  - Ejection fraction decreased [Unknown]
  - Left ventricular enlargement [Unknown]

NARRATIVE: CASE EVENT DATE: 2009
